FAERS Safety Report 8603796-8 (Version None)
Quarter: 2012Q3

REPORT INFORMATION
  Report Type: 
  Country: None (occurrence: None)
  Receive Date: 20120818
  Receipt Date: 20120809
  Transmission Date: 20120928
  Serious: Yes (Other)
  Sender: FDA-Public Use
  Company Number: JP-ROXANE LABORATORIES, INC.-2012-RO-01666RO

PATIENT
  Age: 62 Year
  Sex: Female

DRUGS (4)
  1. DEXAMETHASONE [Suspect]
     Dosage: 8 MG
     Route: 042
  2. DEXAMETHASONE [Suspect]
     Indication: SUPPORTIVE CARE
     Dosage: 8 MG
     Route: 048
  3. DOCETAXEL [Suspect]
     Indication: BREAST CANCER
     Route: 042
  4. CYCLOPHOSPHAMIDE [Suspect]
     Indication: BREAST CANCER
     Route: 042

REACTIONS (3)
  - UPPER RESPIRATORY TRACT INFECTION [None]
  - MYALGIA [None]
  - ARTHRALGIA [None]
